FAERS Safety Report 4429583-2 (Version None)
Quarter: 2004Q3

REPORT INFORMATION
  Report Type: 
  Country: None (occurrence: None)
  Receive Date: 20040816
  Receipt Date: 20040729
  Transmission Date: 20050211
  Serious: Yes (Hospitalization)
  Sender: FDA-Public Use
  Company Number: DSA_24764_2004

PATIENT
  Age: 22 Year
  Sex: Female

DRUGS (3)
  1. TAVOR [Suspect]
     Dosage: 50 MG ONCE PO
     Route: 048
     Dates: start: 20040727, end: 20040727
  2. AKINETON [Suspect]
     Dosage: 60 MG ONCE PO
     Route: 048
     Dates: start: 20040727, end: 20040727
  3. SEROQUEL [Suspect]
     Dosage: 30000 MG ONCE PO
     Route: 048
     Dates: start: 20040727, end: 20040727

REACTIONS (5)
  - BOWEL SOUNDS ABNORMAL [None]
  - FATIGUE [None]
  - INTENTIONAL OVERDOSE [None]
  - MULTIPLE DRUG OVERDOSE [None]
  - TACHYCARDIA [None]
